FAERS Safety Report 13789995 (Version 2)
Quarter: 2017Q3

REPORT INFORMATION
  Report Type: Report from Study
  Country: MX (occurrence: MX)
  Receive Date: 20170725
  Receipt Date: 20170809
  Transmission Date: 20171127
  Serious: Yes (Other)
  Sender: FDA-Public Use
  Company Number: ALCN2017MX004597

PATIENT
  Sex: Female

DRUGS (3)
  1. INDERALICI [Concomitant]
     Indication: CARDIAC DISORDER
     Route: 048
  2. DAFLON [Concomitant]
     Active Substance: DIOSMIN\HESPERIDIN
     Indication: VARICOSE VEIN
     Dosage: UNK
     Route: 048
  3. TRAVATAN [Suspect]
     Active Substance: TRAVOPROST
     Indication: GLAUCOMA
     Dosage: 1 GTT, QD, IN EACH EYE
     Route: 047

REACTIONS (2)
  - Respiratory tract infection [Unknown]
  - Cataract [Not Recovered/Not Resolved]
